FAERS Safety Report 15106447 (Version 1)
Quarter: 2018Q3

REPORT INFORMATION
  Report Type: Report from Study
  Country: US (occurrence: US)
  Receive Date: 20180704
  Receipt Date: 20180704
  Transmission Date: 20181010
  Serious: Yes (Hospitalization, Other)
  Sender: FDA-Public Use
  Company Number: US-TEVA-2018-US-917275

PATIENT
  Age: 48 Year
  Sex: Female

DRUGS (1)
  1. COPAXONE [Suspect]
     Active Substance: GLATIRAMER ACETATE
     Indication: MULTIPLE SCLEROSIS
     Route: 058
     Dates: start: 20161102

REACTIONS (5)
  - Migraine [Unknown]
  - Dyspnoea [Unknown]
  - Heart rate increased [Unknown]
  - Loss of consciousness [Unknown]
  - Hypertension [Unknown]

NARRATIVE: CASE EVENT DATE: 20180622
